FAERS Safety Report 6155591-X (Version None)
Quarter: 2009Q2

REPORT INFORMATION
  Report Type: 
  Country: None (occurrence: None)
  Receive Date: 20090415
  Receipt Date: 20090130
  Transmission Date: 20091009
  Serious: Yes (Other)
  Sender: FDA-Public Use
  Company Number: US-JNJCH-2009002768

PATIENT
  Age: 61 Year
  Sex: Female
  Weight: 72.6 kg

DRUGS (5)
  1. ROGAINE [Suspect]
     Indication: ALOPECIA
     Dosage: TEXT:1 DROPPER, TWICE DAILY
     Route: 061
  2. DIURETICS [Concomitant]
     Indication: DIURETIC THERAPY
     Dosage: TEXT:1/2 PILL DAILY
     Route: 048
  3. SINGULAIR ^DIECKMANN^ [Concomitant]
     Indication: HYPERSENSITIVITY
     Dosage: TEXT:1 DAILY
     Route: 048
  4. CALCIUM [Concomitant]
     Indication: MINERAL SUPPLEMENTATION
     Route: 048
  5. VITAMIN TAB [Concomitant]
     Indication: ALOPECIA
     Dosage: TEXT:1 A DAY
     Route: 048
     Dates: start: 20081115

REACTIONS (2)
  - ALOPECIA SCARRING [None]
  - WRONG DRUG ADMINISTERED [None]
